FAERS Safety Report 24113760 (Version 1)
Quarter: 2024Q3

REPORT INFORMATION
  Report Type: Spontaneous
  Country: CN (occurrence: CN)
  Receive Date: 20240720
  Receipt Date: 20240720
  Transmission Date: 20241017
  Serious: Yes (Hospitalization, Other)
  Sender: MERCK
  Company Number: CN-009507513-2407CHN008739

PATIENT
  Age: 61 Year
  Sex: Male
  Weight: 78 kg

DRUGS (2)
  1. METFORMIN HYDROCHLORIDE\SITAGLIPTIN PHOSPHATE [Suspect]
     Active Substance: METFORMIN HYDROCHLORIDE\SITAGLIPTIN PHOSPHATE
     Indication: Type 2 diabetes mellitus
     Dosage: STRENGTH: 50/850 MG
     Route: 048
  2. IRBESARTAN [Concomitant]
     Active Substance: IRBESARTAN
     Indication: Hypertension
     Dosage: 0.15 GRAM, QD
     Route: 048

REACTIONS (2)
  - Diabetes mellitus inadequate control [Recovered/Resolved]
  - Drug ineffective [Unknown]
